FAERS Safety Report 8847869 (Version 4)
Quarter: 2013Q1

REPORT INFORMATION
  Report Type: Spontaneous
  Country: US (occurrence: US)
  Receive Date: 20121018
  Receipt Date: 20130208
  Transmission Date: 20140127
  Serious: Yes (Hospitalization, Other)
  Sender: FDA-Public Use
  Company Number: US-009507513-1202USA00042

PATIENT
  Sex: Female
  Weight: 64.4 kg

DRUGS (6)
  1. FOSAMAX [Suspect]
     Indication: OSTEOPOROSIS
     Dosage: 10 MG, QD
     Route: 048
     Dates: start: 199806, end: 200110
  2. FOSAMAX [Suspect]
     Dosage: 70 MG, QW
     Dates: start: 200110, end: 200703
  3. FOSAMAX PLUS D [Suspect]
     Indication: OSTEOPOROSIS
     Dosage: 70/2800 MG/IU QW
     Dates: start: 200703, end: 200901
  4. FOSAMAX [Suspect]
     Indication: OSTEOPOROSIS
     Dosage: 70 MG QW
     Dates: start: 200901, end: 201002
  5. VITAMINS (UNSPECIFIED) [Concomitant]
     Dosage: UNK, QD
     Dates: start: 1990
  6. PRILOSEC [Concomitant]
     Indication: GASTROOESOPHAGEAL REFLUX DISEASE
     Dosage: UNK
     Dates: start: 1998, end: 2011

REACTIONS (29)
  - Hip arthroplasty [Unknown]
  - Hip arthroplasty [Unknown]
  - Femur fracture [Unknown]
  - Fall [Unknown]
  - Pelvic fracture [Unknown]
  - Sepsis [Unknown]
  - Escherichia urinary tract infection [Unknown]
  - Hypokalaemia [Unknown]
  - Hypomagnesaemia [Unknown]
  - Fluid overload [Unknown]
  - Cholecystectomy [Unknown]
  - Acute coronary syndrome [Unknown]
  - Hydronephrosis [Unknown]
  - Hypoglycaemia [Unknown]
  - Nephrolithiasis [Not Recovered/Not Resolved]
  - Pyelonephritis [Unknown]
  - Diabetes mellitus [Unknown]
  - Polymyalgia rheumatica [Unknown]
  - Dyslipidaemia [Unknown]
  - Blood cholesterol increased [Unknown]
  - Hypertension [Unknown]
  - Appendicectomy [Unknown]
  - Urinary tract infection [Unknown]
  - Osteoarthritis [Unknown]
  - Haemorrhoids [Unknown]
  - Large intestine polyp [Unknown]
  - Sinus congestion [Unknown]
  - Aortic arteriosclerosis [Unknown]
  - Oropharyngeal pain [Unknown]
